FAERS Safety Report 22193493 (Version 2)
Quarter: 2023Q2

REPORT INFORMATION
  Report Type: Report from Study
  Country: US (occurrence: US)
  Receive Date: 20230410
  Receipt Date: 20230515
  Transmission Date: 20230722
  Serious: Yes (Hospitalization)
  Sender: FDA-Public Use
  Company Number: US-BAUSCH-BL-2023-005585

PATIENT
  Age: 70 Year
  Sex: Female

DRUGS (1)
  1. XIFAXAN [Suspect]
     Active Substance: RIFAXIMIN
     Indication: Hepatic encephalopathy
     Route: 065

REACTIONS (6)
  - Loss of consciousness [Unknown]
  - Hepatic encephalopathy [Unknown]
  - Condition aggravated [Unknown]
  - Product use issue [Unknown]
  - Insurance issue [Unknown]
  - Inability to afford medication [Unknown]
